FAERS Safety Report 5189535-4 (Version None)
Quarter: 2006Q4

REPORT INFORMATION
  Report Type: 
  Country: None (occurrence: None)
  Receive Date: 20061215
  Receipt Date: 20061205
  Transmission Date: 20070319
  Serious: Yes (Other)
  Sender: FDA-Public Use
  Company Number: 2006149821

PATIENT

DRUGS (1)
  1. CHANTIX [Suspect]

REACTIONS (2)
  - CEREBROVASCULAR DISORDER [None]
  - VASCULITIS [None]
